FAERS Safety Report 6207158-2 (Version None)
Quarter: 2009Q2

REPORT INFORMATION
  Report Type: 
  Country: None (occurrence: None)
  Receive Date: 20090528
  Receipt Date: 20090518
  Transmission Date: 20091009
  Serious: Yes (Death, Hospitalization)
  Sender: FDA-Public Use
  Company Number: US-WATSON-2009-03584

PATIENT
  Age: 73 Year
  Sex: Female

DRUGS (3)
  1. DILTIA XT (WATSON LABORATORIES) [Suspect]
     Indication: DRUG USE FOR UNKNOWN INDICATION
     Dosage: 120 MG, BID
  2. SIMVASTATIN [Suspect]
     Indication: DRUG USE FOR UNKNOWN INDICATION
     Dosage: 40 MG, DAILY
  3. SIMVASTATIN [Suspect]
     Dosage: 20 MG, DAILY

REACTIONS (3)
  - DRUG INTERACTION [None]
  - RENAL DISORDER [None]
  - RHABDOMYOLYSIS [None]
